FAERS Safety Report 23276234 (Version 5)
Quarter: 2025Q3

REPORT INFORMATION
  Report Type: Report from Study
  Country: CA (occurrence: CA)
  Receive Date: 20231208
  Receipt Date: 20250707
  Transmission Date: 20251021
  Serious: Yes (Other)
  Sender: TAKEDA
  Company Number: CA-TAKEDA-2023TUS116653

PATIENT
  Sex: Male

DRUGS (2)
  1. VEDOLIZUMAB [Suspect]
     Active Substance: VEDOLIZUMAB
     Indication: Crohn^s disease
     Dates: start: 20231010, end: 20250131
  2. PREDNISONE [Concomitant]
     Active Substance: PREDNISONE

REACTIONS (13)
  - Rectal haemorrhage [Unknown]
  - Diarrhoea [Unknown]
  - Rectal discharge [Unknown]
  - Malaise [Unknown]
  - Gastrointestinal inflammation [Unknown]
  - Eye irritation [Unknown]
  - Gastrointestinal infection [Unknown]
  - Impaired quality of life [Unknown]
  - Impaired work ability [Unknown]
  - Social problem [Unknown]
  - Abdominal mass [Unknown]
  - Abdominal pain [Unknown]
  - Arthralgia [Unknown]
